FAERS Safety Report 10082121 (Version 1)
Quarter: 2014Q2

REPORT INFORMATION
  Report Type: Spontaneous
  Country: US (occurrence: US)
  Receive Date: 20140416
  Receipt Date: 20140416
  Transmission Date: 20141212
  Serious: Yes (Other)
  Sender: FDA-Public Use
  Company Number: US-ABBVIE-14P-163-1224203-00

PATIENT
  Age: 45 Year
  Sex: Male
  Weight: 104.42 kg

DRUGS (4)
  1. DEPAKOTE ER [Suspect]
     Indication: EPILEPSY
     Dosage: AT BEDTIME
  2. DEPAKOTE [Suspect]
     Indication: EPILEPSY
  3. MOVE FREE [Concomitant]
     Indication: ARTHRALGIA
  4. KEPPRA [Concomitant]
     Indication: EPILEPSY

REACTIONS (11)
  - Petit mal epilepsy [Not Recovered/Not Resolved]
  - Unresponsive to stimuli [Not Recovered/Not Resolved]
  - Headache [Not Recovered/Not Resolved]
  - Amnesia [Not Recovered/Not Resolved]
  - Confusional state [Not Recovered/Not Resolved]
  - Balance disorder [Not Recovered/Not Resolved]
  - Insomnia [Not Recovered/Not Resolved]
  - Disturbance in attention [Not Recovered/Not Resolved]
  - Hallucination [Not Recovered/Not Resolved]
  - Incorrect drug dosage form administered [Not Recovered/Not Resolved]
  - Drug dispensing error [Not Recovered/Not Resolved]
